FAERS Safety Report 12882680 (Version 3)
Quarter: 2016Q4

REPORT INFORMATION
  Report Type: Spontaneous
  Country: US (occurrence: US)
  Receive Date: 20161025
  Receipt Date: 20161122
  Transmission Date: 20170207
  Serious: No
  Sender: FDA-Public Use
  Company Number: US-PFIZER INC-2016494892

PATIENT
  Sex: Female

DRUGS (1)
  1. XALATAN [Suspect]
     Active Substance: LATANOPROST
     Dosage: 1 GTT IN ONE EYE, UNK
     Route: 047

REACTIONS (6)
  - Dysgeusia [Recovered/Resolved]
  - Sebaceous gland disorder [Recovered/Resolved]
  - Dry throat [Recovered/Resolved]
  - Eyelid disorder [Recovered/Resolved]
  - Dry mouth [Recovered/Resolved]
  - Dry eye [Recovered/Resolved]
